FAERS Safety Report 12122358 (Version 1)
Quarter: 2016Q1

REPORT INFORMATION
  Report Type: Spontaneous
  Country: US (occurrence: US)
  Receive Date: 20160226
  Receipt Date: 20160226
  Transmission Date: 20160526
  Serious: No
  Sender: FDA-Public Use
  Company Number: US-ACTELION PHARMACEUTICALS US, INC.-A-US2016-132067

PATIENT
  Age: 68 Year
  Sex: Male

DRUGS (9)
  1. METFORMIN [Concomitant]
     Active Substance: METFORMIN HYDROCHLORIDE
  2. FISH OIL [Concomitant]
     Active Substance: FISH OIL
  3. LISINOPRIL. [Concomitant]
     Active Substance: LISINOPRIL
  4. PLAVIX [Concomitant]
     Active Substance: CLOPIDOGREL BISULFATE
  5. VALCHLOR [Suspect]
     Active Substance: MECHLORETHAMINE
     Indication: MYCOSIS FUNGOIDES
     Dosage: UNK UNK, QD
     Route: 061
     Dates: start: 20151125
  6. ASPIRIN. [Concomitant]
     Active Substance: ASPIRIN
  7. METOPROLOL SUCCINATE. [Concomitant]
     Active Substance: METOPROLOL SUCCINATE
  8. LIPITOR [Concomitant]
     Active Substance: ATORVASTATIN CALCIUM
  9. PREVACID [Concomitant]
     Active Substance: LANSOPRAZOLE

REACTIONS (2)
  - Application site erythema [Not Recovered/Not Resolved]
  - Application site pruritus [Not Recovered/Not Resolved]
